FAERS Safety Report 22273830 (Version 1)
Quarter: 2023Q2

REPORT INFORMATION
  Report Type: Spontaneous
  Country: FR (occurrence: FR)
  Receive Date: 20230502
  Receipt Date: 20230502
  Transmission Date: 20230722
  Serious: Yes (Death, Other)
  Sender: FDA-Public Use
  Company Number: None

PATIENT

DRUGS (1)
  1. IBUPROFEN [Suspect]
     Active Substance: IBUPROFEN
     Indication: Pyrexia
     Dosage: UNK, (1 DOSE/KG 3X/D)
     Route: 048
     Dates: start: 20220929, end: 20220930

REACTIONS (1)
  - Toxic shock syndrome streptococcal [Fatal]

NARRATIVE: CASE EVENT DATE: 20221001
